FAERS Safety Report 5809725-4 (Version None)
Quarter: 2008Q3

REPORT INFORMATION
  Report Type: 
  Country: None (occurrence: None)
  Receive Date: 20080714
  Receipt Date: 20080714
  Transmission Date: 20090109
  Serious: Yes (Disabling, Other)
  Sender: FDA-Public Use
  Company Number: None

PATIENT
  Sex: Female
  Weight: 86.1834 kg

DRUGS (1)
  1. LEVOFLOXACIN [Suspect]
     Indication: PNEUMONIA
     Dosage: TWICE DAILY PO
     Route: 048
     Dates: start: 20080328, end: 20080416

REACTIONS (3)
  - ARTHRALGIA [None]
  - JOINT SPRAIN [None]
  - TENDON RUPTURE [None]
